FAERS Safety Report 10387070 (Version 3)
Quarter: 2014Q3

REPORT INFORMATION
  Report Type: Spontaneous
  Country: US (occurrence: US)
  Receive Date: 20140815
  Receipt Date: 20140918
  Transmission Date: 20150326
  Serious: Yes (Hospitalization, Other)
  Sender: FDA-Public Use
  Company Number: US-NOVOPROD-415600

PATIENT
  Age: 60 Year
  Sex: Female
  Weight: 72.56 kg

DRUGS (3)
  1. NOVOLOG MIX 70/30 [Suspect]
     Active Substance: INSULIN ASPART
     Dosage: 20 UNITS IN THE MORNING AND 20 UNITS AT NIGHT, QD
     Route: 058
     Dates: end: 201406
  2. NOVOLOG MIX 70/30 [Suspect]
     Active Substance: INSULIN ASPART
     Indication: TYPE 1 DIABETES MELLITUS
     Dosage: 20 UNITS IN THE MORNING AND 20 UNITS AT NIGHT, QD
     Route: 058
     Dates: start: 201304
  3. NOVOLOG MIX 70/30 [Suspect]
     Active Substance: INSULIN ASPART
     Dosage: 20 UNITS IN THE MORNING AND 20 UNITS AT NIGHT, QD
     Route: 058
     Dates: end: 201406

REACTIONS (3)
  - Hyponatraemia [Recovered/Resolved]
  - Device malfunction [Recovered/Resolved]
  - Blood glucose increased [Recovered/Resolved]

NARRATIVE: CASE EVENT DATE: 201406
